FAERS Safety Report 8520740-2 (Version None)
Quarter: 2012Q3

REPORT INFORMATION
  Report Type: 
  Country: None (occurrence: None)
  Receive Date: 20120719
  Receipt Date: 20120713
  Transmission Date: 20120928
  Serious: Yes (Death, Hospitalization, Other)
  Sender: FDA-Public Use
  Company Number: FR-JNJFOC-20120701440

PATIENT

DRUGS (5)
  1. RITUXIMAB [Suspect]
     Indication: MANTLE CELL LYMPHOMA
     Dosage: ON DAY 1 (AND DAY 8 OF CYCLE 1)
     Route: 065
  2. DOXORUBICIN HCL [Suspect]
     Indication: MANTLE CELL LYMPHOMA
     Dosage: AS A CONTINUOUS INFUSION FROM DAY 1 TO 4
     Route: 042
  3. VELCADE [Suspect]
     Indication: MANTLE CELL LYMPHOMA
     Dosage: ON DAYS 1, 4, 8 AND 11
     Route: 065
  4. DEXAMETHASONE [Suspect]
     Indication: MANTLE CELL LYMPHOMA
     Dosage: DAY 1 TO 4
     Route: 065
  5. CHLORAMBUCIL [Suspect]
     Indication: MANTLE CELL LYMPHOMA
     Dosage: FROM DAY 20 TO 29.
     Route: 065

REACTIONS (17)
  - LUNG DISORDER [None]
  - NEUTROPENIA [None]
  - INFECTION [None]
  - CARDIOTOXICITY [None]
  - MANTLE CELL LYMPHOMA [None]
  - FEBRILE NEUTROPENIA [None]
  - RENAL DISORDER [None]
  - GASTROINTESTINAL TOXICITY [None]
  - DRUG EFFECT DECREASED [None]
  - NEUROTOXICITY [None]
  - THROMBOCYTOPENIA [None]
  - ANAEMIA [None]
  - NEUROPATHY PERIPHERAL [None]
  - MANTLE CELL LYMPHOMA REFRACTORY [None]
  - HEPATOTOXICITY [None]
  - SKIN TOXICITY [None]
  - TOXICITY TO VARIOUS AGENTS [None]
